FAERS Safety Report 9353032 (Version 4)
Quarter: 2013Q2

REPORT INFORMATION
  Report Type: Spontaneous
  Country: US (occurrence: US)
  Receive Date: 20130618
  Receipt Date: 20130628
  Transmission Date: 20140414
  Serious: Yes (Hospitalization)
  Sender: FDA-Public Use
  Company Number: US-ROCHE-1227309

PATIENT
  Age: 62 Year
  Sex: Female

DRUGS (10)
  1. PEGASYS [Suspect]
     Indication: CHRONIC HEPATITIS C
     Route: 058
     Dates: start: 20130508, end: 20130607
  2. PEGASYS [Suspect]
     Route: 058
     Dates: start: 20130610
  3. RIBAPAK [Suspect]
     Indication: CHRONIC HEPATITIS C
     Dosage: DAILY IN DIVIDED DOSES (600/400 MG)
     Route: 048
     Dates: start: 20130508
  4. LACTULOSE [Suspect]
     Indication: HEPATIC CIRRHOSIS
     Dosage: DOSE: 3 TABLESPOON
     Route: 065
  5. PRISTIQ [Concomitant]
     Indication: DEPRESSION
     Dosage: DAILY
     Route: 065
  6. ALDACTONE (UNITED STATES) [Concomitant]
     Route: 065
  7. K-DUR [Concomitant]
     Route: 065
  8. AMBIEN [Concomitant]
     Indication: INSOMNIA
     Route: 065
  9. ZOFRAN [Concomitant]
     Dosage: AS REQUIRED
     Route: 065
  10. XIFAXAN [Concomitant]
     Route: 065

REACTIONS (20)
  - Anxiety [Unknown]
  - Ammonia increased [Not Recovered/Not Resolved]
  - Insomnia [Unknown]
  - Nausea [Unknown]
  - Vertigo [Unknown]
  - Fall [Unknown]
  - Chapped lips [Unknown]
  - Conjunctival hyperaemia [Unknown]
  - Oedema [Unknown]
  - Erythema [Unknown]
  - Muscle spasms [Unknown]
  - Dry mouth [Unknown]
  - Anxiety [Unknown]
  - Vomiting [Recovered/Resolved]
  - Abdominal distension [Unknown]
  - Constipation [Unknown]
  - Abdominal pain [Unknown]
  - Abdominal distension [Unknown]
  - Vomiting [Recovered/Resolved]
  - Drug hypersensitivity [Unknown]
